FAERS Safety Report 6897998-9 (Version None)
Quarter: 2010Q3

REPORT INFORMATION
  Report Type: 
  Country: None (occurrence: None)
  Receive Date: 20100802
  Receipt Date: 20070823
  Transmission Date: 20110219
  Serious: Yes (Other)
  Sender: FDA-Public Use
  Company Number: US-PFIZER INC-2007056216

PATIENT
  Sex: Female
  Weight: 73.48 kg

DRUGS (4)
  1. LYRICA [Suspect]
     Indication: PAIN
  2. TOPAMAX [Suspect]
     Indication: MIGRAINE PROPHYLAXIS
     Dates: start: 20070402, end: 20070618
  3. NORTRIPTYLINE HCL [Suspect]
     Indication: PAIN
  4. NORTRIPTYLINE HCL [Suspect]
     Indication: NEUROPATHY PERIPHERAL

REACTIONS (2)
  - STEVENS-JOHNSON SYNDROME [None]
  - STOMATITIS [None]
